FAERS Safety Report 6148680-7 (Version None)
Quarter: 2009Q2

REPORT INFORMATION
  Report Type: 
  Country: None (occurrence: None)
  Receive Date: 20090406
  Receipt Date: 20090406
  Transmission Date: 20091009
  Serious: Yes (Life-Threatening)
  Sender: FDA-Public Use
  Company Number: None

PATIENT
  Age: 53 Year
  Sex: Female
  Weight: 62.1428 kg

DRUGS (1)
  1. REGLAN [Suspect]
     Indication: MIGRAINE
     Dosage: 10 MG
     Dates: start: 20090320, end: 20090320

REACTIONS (7)
  - DRUG HYPERSENSITIVITY [None]
  - DYSPHAGIA [None]
  - FACIAL PAIN [None]
  - MUSCULOSKELETAL STIFFNESS [None]
  - NECK PAIN [None]
  - OROPHARYNGEAL PAIN [None]
  - SENSATION OF PRESSURE [None]
